FAERS Safety Report 9252076 (Version 2)
Quarter: 2013Q2

REPORT INFORMATION
  Report Type: Spontaneous
  Country: US (occurrence: US)
  Receive Date: 20130424
  Receipt Date: 20130513
  Transmission Date: 20140414
  Serious: Yes (Hospitalization)
  Sender: FDA-Public Use
  Company Number: US-PFIZER INC-2013125280

PATIENT
  Age: 59 Year
  Sex: Male
  Weight: 120 kg

DRUGS (6)
  1. XANAX XR [Suspect]
     Indication: DEPRESSION
     Dosage: 2 MG, DAILY
  2. XANAX XR [Suspect]
     Dosage: HALF TABLET OF 2MG, UNK
     Dates: end: 2013
  3. PRISTIQ [Suspect]
     Indication: DEPRESSION
     Dosage: 50 MG, UNK
  4. PRISTIQ [Suspect]
     Indication: BIPOLAR DISORDER
  5. METFORMIN HCL [Suspect]
     Indication: DIABETES MELLITUS
     Dosage: 1000 MG, 2X/DAY
  6. KLONOPIN [Suspect]
     Indication: ANXIETY
     Dosage: UNK

REACTIONS (9)
  - Depression [Unknown]
  - Drug dose omission [Unknown]
  - Hypoaesthesia [Not Recovered/Not Resolved]
  - Dysstasia [Not Recovered/Not Resolved]
  - Paraesthesia [Not Recovered/Not Resolved]
  - Sensation of pressure [Not Recovered/Not Resolved]
  - Swelling [Not Recovered/Not Resolved]
  - Glycosylated haemoglobin increased [Unknown]
  - Hepatic enzyme increased [Unknown]
